FAERS Safety Report 9187487 (Version 1)
Quarter: 2013Q1

REPORT INFORMATION
  Report Type: Spontaneous
  Country: GB (occurrence: GB)
  Receive Date: 20130325
  Receipt Date: 20130325
  Transmission Date: 20140127
  Serious: Yes (Other)
  Sender: FDA-Public Use
  Company Number: GB-TEVA-392238ISR

PATIENT
  Age: 30 Year
  Sex: Male
  Weight: 82.55 kg

DRUGS (10)
  1. TRAMADOL [Suspect]
     Indication: ANALGESIC THERAPY
     Dosage: AS REQUIRED
     Route: 048
     Dates: start: 19950101, end: 20130201
  2. DIHYDROCODEINE [Suspect]
     Indication: ANALGESIC THERAPY
     Dosage: AS REQUIRED
     Route: 048
     Dates: start: 19950101, end: 20130201
  3. SOLPADEINE [Suspect]
     Indication: ANALGESIC THERAPY
     Dosage: AS REQUIRED
     Route: 048
     Dates: start: 19950101, end: 20130201
  4. NUROFEN [Suspect]
     Indication: ANALGESIC THERAPY
     Dosage: AS REQUIRED
     Route: 048
     Dates: start: 19950101, end: 20130201
  5. ASPIRIN [Suspect]
     Indication: ANALGESIC THERAPY
     Dosage: AS REQUIRED
     Route: 048
     Dates: start: 19950101, end: 20130201
  6. CO-DYDRAMOL [Suspect]
     Indication: ANALGESIC THERAPY
     Dosage: AS REQUIRED
     Route: 048
     Dates: start: 19950101, end: 20130201
  7. CODEINE PHOSPHATE [Suspect]
     Indication: ANALGESIC THERAPY
     Dosage: AS REQUIRED
     Route: 048
     Dates: start: 19950101, end: 20130201
  8. PROPRANOLOL [Concomitant]
  9. SERTRALINE [Concomitant]
  10. INHALER [Concomitant]
     Indication: ASTHMA

REACTIONS (9)
  - Drug dependence [Recovering/Resolving]
  - Abnormal behaviour [Unknown]
  - Alcoholism [Unknown]
  - Withdrawal syndrome [Unknown]
  - Insomnia [Unknown]
  - Vomiting [Unknown]
  - Mood altered [Unknown]
  - Erectile dysfunction [Unknown]
  - Ejaculation failure [Unknown]
